FAERS Safety Report 8523352-X (Version None)
Quarter: 2012Q3

REPORT INFORMATION
  Report Type: 
  Country: None (occurrence: None)
  Receive Date: 20120720
  Receipt Date: 20110204
  Transmission Date: 20120928
  Serious: Yes (Hospitalization, Other)
  Sender: FDA-Public Use
  Company Number: US-BAYER-201015978NA

PATIENT
  Age: 19 Year
  Sex: Female
  Weight: 79.545 kg

DRUGS (7)
  1. YASMIN [Suspect]
     Indication: PRODUCT USED FOR UNKNOWN INDICATION
     Route: 048
  2. TRAZODONE HYDROCHLORIDE [Concomitant]
     Indication: SLEEP DISORDER THERAPY
     Route: 065
  3. YAZ [Suspect]
     Indication: PRODUCT USED FOR UNKNOWN INDICATION
     Dosage: PATIENT RECEIVED SAMPLES OF YASMIN IN SEP 2002 (2-3 MONTH SUPPLY)
     Route: 048
     Dates: start: 20020901, end: 20030101
  4. PAXIL [Concomitant]
     Indication: POSTPARTUM DEPRESSION
     Route: 065
  5. TORADOL [Concomitant]
  6. LEXAPRO [Concomitant]
     Route: 065
  7. XANAX [Concomitant]
     Indication: ANXIETY
     Route: 065

REACTIONS (7)
  - COMPLICATION OF PREGNANCY [None]
  - KIDNEY INFECTION [None]
  - CHOLECYSTITIS CHRONIC [None]
  - POSTPARTUM DEPRESSION [None]
  - DEPRESSION [None]
  - CHOLECYSTECTOMY [None]
  - MIGRAINE [None]
